FAERS Safety Report 8505298-6 (Version None)
Quarter: 2012Q3

REPORT INFORMATION
  Report Type: 
  Country: None (occurrence: None)
  Receive Date: 20120712
  Receipt Date: 20120703
  Transmission Date: 20120928
  Serious: Yes (Other)
  Sender: FDA-Public Use
  Company Number: CA-JNJFOC-20120701530

PATIENT
  Sex: Male
  Weight: 78 kg

DRUGS (6)
  1. IRON [Concomitant]
     Route: 048
  2. WARFARIN SODIUM [Concomitant]
     Route: 048
  3. PREDNISONE TAB [Concomitant]
     Route: 065
  4. PENTASA [Concomitant]
     Dosage: ONCE IN 4-6 HOURS
     Route: 065
  5. LACTULOSE [Concomitant]
     Route: 048
  6. REMICADE [Suspect]
     Indication: CROHN'S DISEASE
     Route: 042

REACTIONS (1)
  - BLOOD COUNT ABNORMAL [None]
